FAERS Safety Report 7436965-3 (Version None)
Quarter: 2011Q2

REPORT INFORMATION
  Report Type: 
  Country: None (occurrence: None)
  Receive Date: 20110426
  Receipt Date: 20110329
  Transmission Date: 20111010
  Serious: No
  Sender: FDA-Public Use
  Company Number: US-B.I. PHARMACEUTICALS,INC./RIDGEFIELD-2011-BP-09564BP

PATIENT
  Age: 7 Year
  Sex: Male

DRUGS (3)
  1. ZANTAC 75 [Suspect]
     Indication: GASTROOESOPHAGEAL REFLUX DISEASE
     Dosage: 75 MG
     Route: 048
     Dates: start: 20110329
  2. FLOVENT [Concomitant]
     Indication: MULTIPLE ALLERGIES
     Dosage: 88 MCG
     Route: 055
  3. SINGULAIR [Concomitant]
     Indication: MULTIPLE ALLERGIES
     Dosage: 5 MG
     Route: 048

REACTIONS (1)
  - URTICARIA [None]
